FAERS Safety Report 9129335 (Version 2)
Quarter: 2013Q4

REPORT INFORMATION
  Report Type: Spontaneous
  Country: GB (occurrence: GB)
  Receive Date: 20130125
  Receipt Date: 20131001
  Transmission Date: 20140711
  Serious: Yes (Life-Threatening, Hospitalization, Disabling)
  Sender: FDA-Public Use
  Company Number: PHHY2013GB006730

PATIENT
  Age: 62 Year
  Sex: Female
  Weight: 75 kg

DRUGS (14)
  1. FLUOXETINE [Suspect]
     Indication: DEPRESSION
     Dosage: 10 MG
     Route: 048
     Dates: start: 20130107
  2. FLUOXETINE [Suspect]
     Dosage: 20 MG, UNK
     Route: 048
     Dates: start: 20130110
  3. CLOBAZAM [Concomitant]
  4. PHENYTOIN [Concomitant]
  5. FERROUS FUMARATE [Concomitant]
  6. CALCEOS [Concomitant]
  7. LEVOTHYROXINE [Concomitant]
  8. OLANZAPINE [Concomitant]
  9. TOPIRAMATE [Concomitant]
  10. PARACETAMOL [Concomitant]
  11. HALOPERIDOL [Concomitant]
  12. SENNA [Concomitant]
  13. CHLORPHENAMINE [Concomitant]
  14. PROCYCLIDINE [Concomitant]

REACTIONS (4)
  - Coma scale abnormal [Unknown]
  - Unresponsive to stimuli [Unknown]
  - Anticonvulsant drug level increased [Not Recovered/Not Resolved]
  - Confusional state [Unknown]
